FAERS Safety Report 17860152 (Version 1)
Quarter: 2020Q2

REPORT INFORMATION
  Report Type: Report from Study
  Country: US (occurrence: US)
  Receive Date: 20200604
  Receipt Date: 20200604
  Transmission Date: 20200714
  Serious: No
  Sender: FDA-Public Use
  Company Number: NVSC2018US004625

PATIENT
  Sex: Female

DRUGS (7)
  1. KETOROLAC [Suspect]
     Active Substance: KETOROLAC TROMETHAMINE
     Route: 065
  2. AZELASTINE. [Suspect]
     Active Substance: AZELASTINE HYDROCHLORIDE
     Route: 065
  3. OLOPATADINE HYDROCHLORIDE. [Suspect]
     Active Substance: OLOPATADINE HYDROCHLORIDE
     Route: 065
  4. EPINASTINE. [Suspect]
     Active Substance: EPINASTINE HYDROCHLORIDE
     Route: 065
  5. KETOTIFEN [Concomitant]
     Active Substance: KETOTIFEN
     Route: 065
  6. PATANOL [Suspect]
     Active Substance: OLOPATADINE HYDROCHLORIDE
     Route: 065
  7. ZADITOR [Suspect]
     Active Substance: KETOTIFEN FUMARATE
     Route: 065

REACTIONS (1)
  - Treatment failure [Unknown]
